FAERS Safety Report 19763392 (Version 9)
Quarter: 2022Q4

REPORT INFORMATION
  Report Type: Report from Study
  Country: DE (occurrence: DE)
  Receive Date: 20210830
  Receipt Date: 20221104
  Transmission Date: 20230112
  Serious: Yes (Other)
  Sender: FDA-Public Use
  Company Number: DE-ROCHE-2234385

PATIENT
  Age: 56 Year
  Sex: Female

DRUGS (24)
  1. RAMIPRIL [Suspect]
     Active Substance: RAMIPRIL
     Indication: Product used for unknown indication
     Dosage: 10 MILLIGRAM, QD
     Route: 065
  2. RAMIPRIL [Suspect]
     Active Substance: RAMIPRIL
     Dosage: 7.5 MILLIGRAM, QD
     Route: 065
  3. RAMIPRIL [Suspect]
     Active Substance: RAMIPRIL
     Dosage: 5 MILLIGRAM, QD
     Route: 065
  4. RAMIPRIL [Suspect]
     Active Substance: RAMIPRIL
     Indication: Product used for unknown indication
     Dosage: 5 MILLIGRAM, QD
     Route: 065
  5. DEXA EDO [Suspect]
     Active Substance: DEXAMETHASONE SODIUM PHOSPHATE
     Indication: Product used for unknown indication
     Dosage: UNK, QH (IN THE LEFT EYE)
     Route: 065
  6. OCREVUS [Suspect]
     Active Substance: OCRELIZUMAB
     Indication: Primary progressive multiple sclerosis
     Dosage: 600 MILLIGRAM (Q150D)
     Route: 042
     Dates: start: 20171201
  7. OCREVUS [Suspect]
     Active Substance: OCRELIZUMAB
     Dosage: 600 MILLIGRAM
     Route: 042
     Dates: start: 20190122
  8. OCREVUS [Suspect]
     Active Substance: OCRELIZUMAB
     Dosage: 600 MILLIGRAM (5TH INFUSION)
     Route: 042
     Dates: start: 20190724
  9. OCREVUS [Suspect]
     Active Substance: OCRELIZUMAB
     Dosage: 600 MILLIGRAM
     Route: 042
     Dates: start: 20200122
  10. OCREVUS [Suspect]
     Active Substance: OCRELIZUMAB
     Dosage: 600 MILLIGRAM
     Route: 042
     Dates: start: 20200722
  11. OCREVUS [Suspect]
     Active Substance: OCRELIZUMAB
     Dosage: 600 MILLIGRAM
     Route: 042
     Dates: start: 20201215
  12. OCREVUS [Suspect]
     Active Substance: OCRELIZUMAB
     Dosage: 600 MILLIGRAM (Q162D)
     Route: 042
     Dates: start: 20210526
  13. OCREVUS [Suspect]
     Active Substance: OCRELIZUMAB
     Dosage: UNK (Q160D)
     Route: 042
     Dates: start: 20211102
  14. OCREVUS [Suspect]
     Active Substance: OCRELIZUMAB
     Dosage: 600 MILLIGRAM IN 5 MONTHS (9TH MAINTENANCE DOSE))
     Route: 042
     Dates: start: 20220401
  15. CORTISONE [Suspect]
     Active Substance: CORTISONE
     Indication: Macular oedema
     Dosage: UNK, PRN, AS REQUIRED IN LEFT EYE (DROP)
     Route: 065
  16. CORTISONE [Suspect]
     Active Substance: CORTISONE
     Dosage: UNK
     Route: 065
  17. CORTISONE [Suspect]
     Active Substance: CORTISONE
     Indication: Macular oedema
     Dosage: UNK (STICK)
     Route: 065
  18. SERTRALINE [Concomitant]
     Active Substance: SERTRALINE HYDROCHLORIDE
     Dosage: 50 MILLIGRAM, QD
     Route: 065
     Dates: start: 20200619
  19. CHOLECALCIFEROL [Concomitant]
     Active Substance: CHOLECALCIFEROL
     Dosage: 20000 INTERNATIONAL UNIT, QW
     Route: 065
  20. LEVOTHYROXINE SODIUM [Concomitant]
     Active Substance: LEVOTHYROXINE SODIUM
     Dosage: 75 MICROGRAM
     Route: 065
  21. LEVOTHYROXINE SODIUM [Concomitant]
     Active Substance: LEVOTHYROXINE SODIUM
     Dosage: 75 MICROGRAM, QD
     Route: 065
  22. LEVOTHYROXINE SODIUM [Concomitant]
     Active Substance: LEVOTHYROXINE SODIUM
     Dosage: 50 MICROGRAM
     Route: 065
  23. COMIRNATY [Concomitant]
     Active Substance: TOZINAMERAN
     Dosage: UNK, FIRST DOSE
     Route: 065
     Dates: start: 20210407
  24. COMIRNATY [Concomitant]
     Active Substance: TOZINAMERAN
     Dosage: UNK, SECOND DOSE
     Route: 065
     Dates: start: 20210428

REACTIONS (72)
  - Hypertension [Recovered/Resolved]
  - Hemiparesis [Not Recovered/Not Resolved]
  - Central nervous system lesion [Not Recovered/Not Resolved]
  - Macular oedema [Not Recovered/Not Resolved]
  - Magnetic resonance imaging head abnormal [Not Recovered/Not Resolved]
  - Iritis [Recovering/Resolving]
  - Erythema [Recovered/Resolved]
  - Vestibular disorder [Not Recovered/Not Resolved]
  - Listless [Recovered/Resolved]
  - Hypercholesterolaemia [Unknown]
  - Visual impairment [Not Recovered/Not Resolved]
  - Scleral hyperaemia [Not Recovered/Not Resolved]
  - Pain [Recovering/Resolving]
  - Fall [Unknown]
  - Mobility decreased [Recovered/Resolved]
  - Micturition urgency [Recovered/Resolved]
  - Muscle disorder [Recovering/Resolving]
  - Lip erythema [Not Recovered/Not Resolved]
  - Hypoaesthesia [Not Recovered/Not Resolved]
  - Blood cholesterol increased [Recovered/Resolved]
  - Iliotibial band syndrome [Recovering/Resolving]
  - Abnormal sensation in eye [Not Recovered/Not Resolved]
  - Hyperaesthesia [Recovered/Resolved]
  - Dry skin [Not Recovered/Not Resolved]
  - Bladder dysfunction [Not Recovered/Not Resolved]
  - Muscular weakness [Recovered/Resolved]
  - Urinary tract infection [Recovered/Resolved]
  - Drug intolerance [Recovered/Resolved]
  - Onychoclasis [Recovered/Resolved]
  - Muscle spasticity [Recovered/Resolved]
  - Hair texture abnormal [Not Recovered/Not Resolved]
  - Hyperacusis [Not Recovered/Not Resolved]
  - Depression [Recovered/Resolved]
  - Taste disorder [Not Recovered/Not Resolved]
  - Residual urine volume increased [Not Recovered/Not Resolved]
  - Flatulence [Recovered/Resolved]
  - Stress fracture [Recovered/Resolved]
  - Cartilage injury [Recovered/Resolved]
  - Malaise [Unknown]
  - Crying [Recovered/Resolved]
  - Memory impairment [Not Recovered/Not Resolved]
  - Arrhythmia [Recovered/Resolved]
  - Chills [Not Recovered/Not Resolved]
  - Blood potassium decreased [Recovered/Resolved]
  - Restlessness [Recovered/Resolved]
  - Ocular hyperaemia [Not Recovered/Not Resolved]
  - Gait disturbance [Not Recovered/Not Resolved]
  - Fatigue [Recovered/Resolved]
  - Raynaud^s phenomenon [Not Recovered/Not Resolved]
  - Asthenia [Not Recovered/Not Resolved]
  - Alopecia [Recovered/Resolved]
  - Somnolence [Recovered/Resolved]
  - Paraesthesia [Recovered/Resolved]
  - Decreased appetite [Recovered/Resolved]
  - Ligament sprain [Recovered/Resolved]
  - Ovarian cyst [Recovered/Resolved]
  - Swelling [Recovered/Resolved]
  - Cold sweat [Recovered/Resolved]
  - Trichorrhexis [Not Recovered/Not Resolved]
  - Initial insomnia [Recovered/Resolved]
  - Agitation [Recovered/Resolved]
  - Headache [Recovered/Resolved]
  - Arthralgia [Not Recovered/Not Resolved]
  - Scleral hyperaemia [Not Recovered/Not Resolved]
  - Photophobia [Recovering/Resolving]
  - Metabolic disorder [Unknown]
  - Constipation [Recovered/Resolved]
  - Photosensitivity reaction [Recovering/Resolving]
  - Balance disorder [Not Recovered/Not Resolved]
  - Nausea [Recovered/Resolved]
  - Drug ineffective [Unknown]
  - Therapeutic product effect decreased [Unknown]

NARRATIVE: CASE EVENT DATE: 20171201
